FAERS Safety Report 15556298 (Version 2)
Quarter: 2018Q4

REPORT INFORMATION
  Report Type: Spontaneous
  Country: SE (occurrence: SE)
  Receive Date: 20181026
  Receipt Date: 20181031
  Transmission Date: 20190205
  Serious: Yes (Other)
  Sender: FDA-Public Use
  Company Number: SE-PFIZER INC-2018433730

PATIENT
  Age: 12 Year
  Sex: Female
  Weight: 78 kg

DRUGS (2)
  1. ETHINYLESTRADIOL [Suspect]
     Active Substance: ETHINYL ESTRADIOL
     Indication: BLOOD GROWTH HORMONE INCREASED
     Dosage: UNK
  2. MEDROXYPROGESTERONE ACETATE. [Suspect]
     Active Substance: MEDROXYPROGESTERONE ACETATE
     Indication: BLOOD GROWTH HORMONE INCREASED
     Dosage: UNK

REACTIONS (4)
  - Weight increased [Unknown]
  - Product use in unapproved indication [Unknown]
  - Uterine leiomyoma [Unknown]
  - Menorrhagia [Unknown]
